FAERS Safety Report 9455150 (Version 4)
Quarter: 2013Q3

REPORT INFORMATION
  Report Type: Report from Study
  Country: IE (occurrence: IE)
  Receive Date: 20130813
  Receipt Date: 20130927
  Transmission Date: 20140515
  Serious: Yes (Hospitalization)
  Sender: FDA-Public Use
  Company Number: IE-BAYER-2013-026213

PATIENT
  Age: 58 Year
  Sex: Male

DRUGS (7)
  1. REGORAFENIB [Suspect]
     Indication: COLORECTAL CANCER METASTATIC
     Dosage: 160 MG, QD
     Route: 048
     Dates: start: 20130215, end: 20130226
  2. REGORAFENIB [Suspect]
     Indication: COLORECTAL CANCER METASTATIC
     Dosage: 160 MG DAILY
     Route: 048
     Dates: start: 20130314, end: 20130319
  3. CLEXANE [Concomitant]
     Indication: THROMBOSIS PROPHYLAXIS
     Dosage: DAILY DOSE 100 MG
     Route: 058
  4. LIPITOR [Concomitant]
     Indication: BLOOD CHOLESTEROL INCREASED
     Dosage: DAILY DOSE: 20MG
     Route: 048
  5. MST [MAGNESIUM SALICYLATE] [Concomitant]
     Indication: PAIN MANAGEMENT
     Dosage: DAILY DOSE:30MG
     Route: 048
  6. MST [MAGNESIUM SALICYLATE] [Concomitant]
     Indication: BLOOD CHOLESTEROL INCREASED
  7. PREGABALIN [Concomitant]
     Indication: PAIN MANAGEMENT
     Dosage: DAILY DOSE 600 MG
     Route: 048
     Dates: end: 20130319

REACTIONS (2)
  - Pulmonary sepsis [Recovered/Resolved]
  - Pulmonary sepsis [Recovered/Resolved with Sequelae]
